FAERS Safety Report 6105684-8 (Version None)
Quarter: 2009Q1

REPORT INFORMATION
  Report Type: 
  Country: None (occurrence: None)
  Receive Date: 20090306
  Receipt Date: 20090224
  Transmission Date: 20090719
  Serious: Yes (Hospitalization)
  Sender: FDA-Public Use
  Company Number: FR-PFIZER INC-2009176215

PATIENT

DRUGS (2)
  1. SUNITINIB MALATE [Suspect]
     Route: 042
     Dates: start: 20071201, end: 20080205
  2. ZOMETA [Suspect]
     Indication: RENAL CANCER
     Route: 042
     Dates: start: 20050101, end: 20070101

REACTIONS (1)
  - OSTEONECROSIS [None]
